FAERS Safety Report 7419670-9 (Version None)
Quarter: 2011Q2

REPORT INFORMATION
  Report Type: 
  Country: None (occurrence: None)
  Receive Date: 20110418
  Receipt Date: 20110406
  Transmission Date: 20111010
  Serious: No
  Sender: FDA-Public Use
  Company Number: US-JNJFOC-20110403444

PATIENT
  Sex: Female
  Weight: 113.4 kg

DRUGS (4)
  1. DURAGESIC [Suspect]
     Route: 062
  2. FENTANYL-100 [Suspect]
     Indication: BACK PAIN
     Route: 062
  3. DURAGESIC [Suspect]
     Indication: BACK PAIN
     Route: 062
  4. DURAGESIC [Suspect]
     Route: 062

REACTIONS (2)
  - INAPPROPRIATE SCHEDULE OF DRUG ADMINISTRATION [None]
  - DRUG INEFFECTIVE [None]
